FAERS Safety Report 20877864 (Version 3)
Quarter: 2022Q2

REPORT INFORMATION
  Report Type: Spontaneous
  Country: US (occurrence: US)
  Receive Date: 20220526
  Receipt Date: 20220610
  Transmission Date: 20220721
  Serious: No
  Sender: FDA-Public Use
  Company Number: US-PFIZER INC-202200755407

PATIENT
  Age: 88 Year
  Sex: Female

DRUGS (4)
  1. GABAPENTIN [Suspect]
     Active Substance: GABAPENTIN
     Indication: Pain in extremity
     Dosage: 300 MG
  2. FLUCONAZOLE [Concomitant]
     Active Substance: FLUCONAZOLE
  3. METRONIDAZOLE [Concomitant]
     Active Substance: METRONIDAZOLE
  4. CARVEDILOL + CLORTALIDONA [Concomitant]

REACTIONS (4)
  - Drug hypersensitivity [Unknown]
  - Somnolence [Unknown]
  - Nausea [Unknown]
  - Feeling abnormal [Unknown]
